FAERS Safety Report 9722958 (Version 2)
Quarter: 2013Q4

REPORT INFORMATION
  Report Type: Report from Study
  Country: DE (occurrence: DE)
  Receive Date: 20131202
  Receipt Date: 20131202
  Transmission Date: 20140711
  Serious: Yes (Hospitalization)
  Sender: FDA-Public Use
  Company Number: DE-BAYER-2013-090293

PATIENT
  Sex: Male
  Weight: 82 kg

DRUGS (11)
  1. REGORAFENIB [Suspect]
     Indication: COLORECTAL CANCER METASTATIC
     Dosage: 160 MG, QD
     Route: 048
     Dates: start: 20130622, end: 20130712
  2. PANTOPRAZOLE [Concomitant]
     Indication: GASTROOESOPHAGEAL REFLUX DISEASE
     Dosage: 20MG/DAY
     Route: 048
     Dates: start: 2012
  3. ALLOPURINOL [Concomitant]
     Indication: HYPERURICAEMIA
     Dosage: 150MG/DAY
     Route: 048
     Dates: start: 2012
  4. SIMVASTATIN [Concomitant]
     Indication: HYPERLIPIDAEMIA
     Dosage: 20MG/ DAY
     Route: 048
     Dates: start: 2012
  5. METOPROLOL [Concomitant]
     Indication: HYPERTENSION
     Dosage: 25MG/DAY
     Route: 048
     Dates: start: 2000
  6. ATACAND [CANDESARTAN CILEXETIL] [Concomitant]
     Indication: HYPERTENSION
     Dosage: 15MG/DAY
     Route: 048
     Dates: start: 2000
  7. AAS [Concomitant]
     Indication: ANGINA PECTORIS
     Dosage: 100MG/ DAY
     Route: 048
  8. HUMALOG [Concomitant]
     Indication: DIABETES MELLITUS
     Dosage: DAILY
     Route: 058
     Dates: start: 2000
  9. LANTUS [Concomitant]
     Indication: DIABETES MELLITUS
     Dosage: DAILY
     Route: 058
     Dates: start: 2000
  10. NOVAMINSULFON [Concomitant]
     Indication: HEADACHE
     Dosage: 30 DROPS AS NEEDED
     Route: 048
     Dates: start: 20121011, end: 20121125
  11. L-THYROXIN [Concomitant]
     Indication: HYPOTHYROIDISM
     Dosage: 100UG PER DAY
     Route: 048
     Dates: start: 20130321

REACTIONS (1)
  - Subileus [Recovered/Resolved]
